FAERS Safety Report 4654842-8 (Version None)
Quarter: 2005Q2

REPORT INFORMATION
  Report Type: 
  Country: None (occurrence: None)
  Receive Date: 20050505
  Receipt Date: 20050316
  Transmission Date: 20051028
  Serious: Yes (Death, Hospitalization)
  Sender: FDA-Public Use
  Company Number: 2005S1001773

PATIENT
  Age: 65 Year
  Sex: Female
  Weight: 66.2252 kg

DRUGS (3)
  1. CLOZAPINE [Suspect]
     Indication: SCHIZOPHRENIA
     Dosage: 100 MG;HS;PO
     Route: 048
     Dates: end: 20050301
  2. CODEINE PHOSPHATE/PARACETAMOL [Concomitant]
  3. LORAZEPAM [Concomitant]

REACTIONS (4)
  - ABDOMINAL PAIN UPPER [None]
  - JAUNDICE [None]
  - METASTASIS [None]
  - WHITE BLOOD CELL COUNT DECREASED [None]
